FAERS Safety Report 7331616-0 (Version None)
Quarter: 2011Q1

REPORT INFORMATION
  Report Type: 
  Country: None (occurrence: None)
  Receive Date: 20110228
  Receipt Date: 20110228
  Transmission Date: 20110831
  Serious: Yes (Death, Hospitalization, Other)
  Sender: FDA-Public Use
  Company Number: None

PATIENT
  Age: 62 Year
  Sex: Female

DRUGS (6)
  1. LIDODERM [Concomitant]
  2. ALEVE [Concomitant]
  3. ACETAMINOPHEN [Concomitant]
  4. ARTHROTEC [Suspect]
     Dosage: ORALLY
     Route: 048
     Dates: start: 20110113, end: 20110120
  5. TUMS [Concomitant]
  6. PRILOSEC [Concomitant]

REACTIONS (4)
  - WRONG TECHNIQUE IN DRUG USAGE PROCESS [None]
  - DYSPEPSIA [None]
  - ASTHENIA [None]
  - WEIGHT INCREASED [None]
